FAERS Safety Report 11635547 (Version 4)
Quarter: 2020Q1

REPORT INFORMATION
  Report Type: Report from Study
  Country: GB (occurrence: GB)
  Receive Date: 20151016
  Receipt Date: 20200117
  Transmission Date: 20200409
  Serious: Yes (Hospitalization)
  Sender: FDA-Public Use
  Company Number: GB-ROCHE-1645419

PATIENT
  Age: 50 Year
  Sex: Female
  Weight: 65.2 kg

DRUGS (10)
  1. PERTUZUMAB. [Suspect]
     Active Substance: PERTUZUMAB
     Dosage: MAINTAINANCE DOSE?DATE OF MOST RECENT DOSE OF PERTUZUMAB : 23/SEP/2015
     Route: 042
     Dates: start: 20141203
  2. FLUOROURACIL. [Suspect]
     Active Substance: FLUOROURACIL
     Indication: HER-2 POSITIVE BREAST CANCER
     Route: 065
     Dates: start: 20140910
  3. CYCLOPHOSPHAMIDE. [Suspect]
     Active Substance: CYCLOPHOSPHAMIDE
     Indication: HER-2 POSITIVE BREAST CANCER
     Route: 065
     Dates: end: 20150910
  4. PERTUZUMAB. [Suspect]
     Active Substance: PERTUZUMAB
     Indication: HER-2 POSITIVE BREAST CANCER
     Dosage: LOADING DOSE
     Route: 042
     Dates: start: 20141112, end: 20141112
  5. FLUCLOXACILLIN [Concomitant]
     Active Substance: FLUCLOXACILLIN
     Indication: CELLULITIS
     Route: 065
     Dates: start: 20151010, end: 20151014
  6. TRASTUZUMAB EMTANSINE [Suspect]
     Active Substance: ADO-TRASTUZUMAB EMTANSINE
     Indication: HER-2 POSITIVE BREAST CANCER
     Dosage: DOSE OF LAST TRASTUZUMAB EMTANSINE: 240 MG?DATE OF MOST RECENT DOSE OF TRASTUZUMAB EMTANSINE: 23/SEP
     Route: 042
     Dates: start: 20141112
  7. DIFFLAM [Concomitant]
     Active Substance: BENZYDAMINE HYDROCHLORIDE
     Indication: GINGIVAL BLEEDING
     Route: 065
     Dates: start: 20150224
  8. CODEINE [Concomitant]
     Active Substance: CODEINE
     Indication: ARTHRALGIA
     Route: 065
     Dates: start: 20150317
  9. ACICLOVIR [Concomitant]
     Active Substance: ACYCLOVIR
     Indication: HERPES ZOSTER
     Route: 065
     Dates: start: 20151010, end: 20151014
  10. EPIRUBICIN [Suspect]
     Active Substance: EPIRUBICIN
     Indication: HER-2 POSITIVE BREAST CANCER
     Route: 065
     Dates: start: 20140910

REACTIONS (1)
  - Breast cellulitis [Recovered/Resolved]

NARRATIVE: CASE EVENT DATE: 20151010
